FAERS Safety Report 7475130-0 (Version None)
Quarter: 2011Q2

REPORT INFORMATION
  Report Type: 
  Country: None (occurrence: None)
  Receive Date: 20110512
  Receipt Date: 20110427
  Transmission Date: 20111010
  Serious: Yes (Hospitalization, Other)
  Sender: FDA-Public Use
  Company Number: US-ELI_LILLY_AND_COMPANY-US201104005446

PATIENT
  Sex: Female

DRUGS (20)
  1. FORTEO [Suspect]
     Indication: OSTEOPOROSIS
     Dosage: 20 UG, QD
     Dates: start: 20091101, end: 20110201
  2. METAMUCIL-2 [Concomitant]
     Dosage: UNK, EACH EVENING
  3. LOVAZA [Concomitant]
  4. BETA CAROTENE [Concomitant]
  5. LISINOPRIL [Concomitant]
     Dosage: 10 MG, EACH EVENING
  6. CRESTOR [Concomitant]
     Dosage: 10 MG, EACH EVENING
  7. VITAMINS [Concomitant]
  8. VITAMIN C [Concomitant]
  9. MAGNESIUM [Concomitant]
  10. PENTOXIFYLLINE [Concomitant]
     Dosage: 400 MG, PRN
  11. ANESTHETICS [Concomitant]
  12. OMEPRAZOLE [Concomitant]
     Dosage: 40 MG, EACH MORNING
  13. PLAVIX [Concomitant]
     Dosage: 75 MG, EACH MORNING
  14. FISH OIL [Concomitant]
  15. VITAMIN B-12 [Concomitant]
  16. LOVAZA [Concomitant]
     Dosage: 1 MG, EACH EVENING
  17. VITAMIN E [Concomitant]
  18. CALCIUM [Concomitant]
  19. OSTEO BI-FLEX [Concomitant]
  20. VITAMIN D [Concomitant]

REACTIONS (10)
  - VASCULAR OCCLUSION [None]
  - HYPERSENSITIVITY [None]
  - WEIGHT DECREASED [None]
  - VISION BLURRED [None]
  - CHILLS [None]
  - PRODUCTIVE COUGH [None]
  - ASTHENIA [None]
  - POST PROCEDURAL COMPLICATION [None]
  - DYSPNOEA [None]
  - THROAT TIGHTNESS [None]
